FAERS Safety Report 5701024-4 (Version None)
Quarter: 2008Q2

REPORT INFORMATION
  Report Type: 
  Country: None (occurrence: None)
  Receive Date: 20080410
  Receipt Date: 20080404
  Transmission Date: 20081010
  Serious: Yes (Other)
  Sender: FDA-Public Use
  Company Number: AU-WYE-G00975908

PATIENT
  Sex: Female
  Weight: 39 kg

DRUGS (1)
  1. EFFEXOR XR [Suspect]
     Indication: PANIC ATTACK
     Dosage: ONLY ONE 37.5 MG CAPSULE
     Route: 048
     Dates: start: 20080101, end: 20080101

REACTIONS (12)
  - CONFUSIONAL STATE [None]
  - DIARRHOEA [None]
  - DRUG TOXICITY [None]
  - HYPERHIDROSIS [None]
  - INSOMNIA [None]
  - MUSCLE SPASMS [None]
  - MUSCLE TWITCHING [None]
  - NAUSEA [None]
  - TREMOR [None]
  - TRISMUS [None]
  - VISION BLURRED [None]
  - WEIGHT DECREASED [None]
